FAERS Safety Report 7720230-0 (Version None)
Quarter: 2011Q3

REPORT INFORMATION
  Report Type: 
  Country: None (occurrence: None)
  Receive Date: 20110831
  Receipt Date: 20110829
  Transmission Date: 20111222
  Serious: Yes (Other)
  Sender: FDA-Public Use
  Company Number: US-PFIZER INC-2011194792

PATIENT
  Sex: Female
  Weight: 60.3 kg

DRUGS (5)
  1. GEODON [Suspect]
     Dosage: 120MG OR 160MG, DAILY
     Route: 048
     Dates: start: 19980101, end: 20040101
  2. GEODON [Suspect]
     Dosage: 60 MG, DAILY
     Route: 048
  3. GEODON [Suspect]
     Dosage: UNK
     Route: 048
     Dates: end: 20110801
  4. TRICOR [Concomitant]
     Indication: BLOOD TRIGLYCERIDES INCREASED
     Dosage: 145MG, DAILY
     Route: 048
  5. DIOVAN [Concomitant]
     Indication: HYPERTENSION
     Dosage: 160MG, DAILY
     Route: 048

REACTIONS (3)
  - BURNING SENSATION [None]
  - WEIGHT INCREASED [None]
  - WEIGHT DECREASED [None]
